FAERS Safety Report 13124094 (Version 5)
Quarter: 2017Q1

REPORT INFORMATION
  Report Type: Report from Study
  Country: US (occurrence: US)
  Receive Date: 20170118
  Receipt Date: 20170314
  Transmission Date: 20170428
  Serious: Yes (Death, Hospitalization, Other)
  Sender: FDA-Public Use
  Company Number: US-GILEAD-2017-0253291

PATIENT
  Age: 65 Year
  Sex: Male
  Weight: 75.28 kg

DRUGS (2)
  1. AMBRISENTAN [Suspect]
     Active Substance: AMBRISENTAN
     Indication: HISTOPLASMOSIS
  2. AMBRISENTAN [Suspect]
     Active Substance: AMBRISENTAN
     Indication: PULMONARY HYPERTENSION
     Dosage: 10 MG, QD
     Route: 065
     Dates: start: 20120406

REACTIONS (5)
  - Pulmonary arterial pressure increased [Unknown]
  - Multiple organ dysfunction syndrome [Fatal]
  - Viral infection [Unknown]
  - Pneumonia [Unknown]
  - Pneumonia respiratory syncytial viral [Fatal]
